FAERS Safety Report 15598776 (Version 1)
Quarter: 2018Q4

REPORT INFORMATION
  Report Type: Spontaneous
  Country: US (occurrence: US)
  Receive Date: 20181108
  Receipt Date: 20181108
  Transmission Date: 20190205
  Serious: Yes (Hospitalization)
  Sender: FDA-Public Use
  Company Number: US-VIFOR (INTERNATIONAL) INC.-VIT-2018-10805

PATIENT
  Age: 58 Year
  Sex: Female

DRUGS (17)
  1. RENA-VITE [Concomitant]
     Active Substance: ASCORBIC ACID\BIOTIN\CALCIUM PANTOTHENATE\CYANOCOBALAMIN\FOLIC ACID\NIACINAMIDE\PYRIDOXINE HYDROCHLORIDE\RIBOFLAVIN\THIAMINE MONONITRATE
  2. ACETAMINOPHEN. [Concomitant]
     Active Substance: ACETAMINOPHEN
  3. LEVEMIR [Concomitant]
     Active Substance: INSULIN DETEMIR
  4. CALCIUM ACETATE. [Concomitant]
     Active Substance: CALCIUM ACETATE
  5. SENSIPAR [Concomitant]
     Active Substance: CINACALCET HYDROCHLORIDE
  6. HUMALOG MIX50/50 [Concomitant]
     Active Substance: INSULIN LISPRO
  7. FUROSEMIDE. [Concomitant]
     Active Substance: FUROSEMIDE
  8. RENVELA [Concomitant]
     Active Substance: SEVELAMER CARBONATE
  9. TRADJENTA [Concomitant]
     Active Substance: LINAGLIPTIN
  10. SERTRALINE HCL [Concomitant]
     Active Substance: SERTRALINE HYDROCHLORIDE
  11. VELTASSA [Suspect]
     Active Substance: PATIROMER
     Indication: HYPERKALAEMIA
     Route: 048
     Dates: start: 20160708, end: 201810
  12. CRESTOR [Concomitant]
     Active Substance: ROSUVASTATIN CALCIUM
  13. VITAMIN D [Concomitant]
     Active Substance: CHOLECALCIFEROL
  14. NIFEDIPINE. [Concomitant]
     Active Substance: NIFEDIPINE
  15. LANTUS [Concomitant]
     Active Substance: INSULIN GLARGINE
  16. CARVEDILOL. [Concomitant]
     Active Substance: CARVEDILOL
  17. DOCUSATE SODIUM. [Concomitant]
     Active Substance: DOCUSATE SODIUM

REACTIONS (1)
  - Blood glucose decreased [Unknown]

NARRATIVE: CASE EVENT DATE: 20181025
